FAERS Safety Report 6297206-6 (Version None)
Quarter: 2009Q3

REPORT INFORMATION
  Report Type: 
  Country: None (occurrence: None)
  Receive Date: 20090804
  Receipt Date: 20090804
  Transmission Date: 20100115
  Serious: Yes (Life-Threatening, Hospitalization)
  Sender: FDA-Public Use
  Company Number: None

PATIENT
  Sex: Male

DRUGS (1)
  1. DIGOXIN [Suspect]
     Dosage: 25 MG, 1 DAILY  30YEARS TO 10/09/2008
     Dates: end: 20081009

REACTIONS (1)
  - HEART RATE DECREASED [None]
